FAERS Safety Report 6159434-X (Version None)
Quarter: 2009Q2

REPORT INFORMATION
  Report Type: 
  Country: None (occurrence: None)
  Receive Date: 20090417
  Receipt Date: 20090406
  Transmission Date: 20091009
  Serious: Yes (Hospitalization, Other)
  Sender: FDA-Public Use
  Company Number: US-JNJFOC-20090401952

PATIENT
  Sex: Male
  Weight: 113.4 kg

DRUGS (3)
  1. REMICADE [Suspect]
     Indication: DRUG USE FOR UNKNOWN INDICATION
     Route: 042
  2. MERCAPTOPURINE [Concomitant]
     Indication: COLITIS ULCERATIVE
  3. BLOOD PRESSURE MEDICATION [Concomitant]
     Indication: COLITIS ULCERATIVE

REACTIONS (2)
  - BLADDER CANCER [None]
  - PNEUMONIA [None]
